FAERS Safety Report 4578915-3 (Version None)
Quarter: 2005Q1

REPORT INFORMATION
  Report Type: 
  Country: None (occurrence: None)
  Receive Date: 20050211
  Receipt Date: 20050203
  Transmission Date: 20050727
  Serious: Yes (Hospitalization)
  Sender: FDA-Public Use
  Company Number: JP-ABBOTT-05P-087-0289604-00

PATIENT
  Age: 79 Year
  Sex: Male
  Weight: 42.6 kg

DRUGS (5)
  1. CLARITH [Suspect]
     Indication: PNEUMONIA
     Route: 048
     Dates: start: 20040921, end: 20041001
  2. PAZUFLOXACIN MESILATE [Suspect]
     Indication: PNEUMONIA
     Route: 048
     Dates: start: 20040921, end: 20041001
  3. MINOCYCLINE HYDROCHLORIDE [Suspect]
     Indication: PNEUMONIA
     Route: 048
     Dates: start: 20040921, end: 20041001
  4. LANSOPRAZOLE [Suspect]
     Indication: REFLUX OESOPHAGITIS
     Route: 048
     Dates: start: 20040921, end: 20041001
  5. ALLOPURINOL [Suspect]
     Indication: HYPERURICAEMIA
     Route: 048
     Dates: start: 20040921, end: 20041001

REACTIONS (2)
  - INTERSTITIAL LUNG DISEASE [None]
  - PYREXIA [None]
